FAERS Safety Report 22862774 (Version 2)
Quarter: 2024Q2

REPORT INFORMATION
  Report Type: Spontaneous
  Country: US (occurrence: US)
  Receive Date: 20230824
  Receipt Date: 20240620
  Transmission Date: 20240715
  Serious: Yes (Hospitalization)
  Sender: FDA-Public Use
  Company Number: US-CYCLE PHARMACEUTICALS LTD-2023-CYC-000061

PATIENT

DRUGS (4)
  1. NITYR [Suspect]
     Active Substance: NITISINONE
     Indication: Tyrosinaemia
     Dosage: 30 MG (THREE  TABLETS IN MORNING)
     Route: 048
  2. NITYR [Suspect]
     Active Substance: NITISINONE
     Indication: Amino acid metabolism disorder
     Dosage: 20MG (2 TABLETS IN AFTERNOON)
     Route: 048
  3. NITYR [Suspect]
     Active Substance: NITISINONE
     Dosage: 4 TABLETS, QD (40 MG)
     Route: 048
  4. LEXAPRO [Concomitant]
     Active Substance: ESCITALOPRAM OXALATE
     Indication: Product used for unknown indication
     Route: 065

REACTIONS (4)
  - Psychotic disorder [Unknown]
  - Mania [Unknown]
  - Weight increased [Unknown]
  - Unevaluable investigation [Unknown]

NARRATIVE: CASE EVENT DATE: 20240610
